FAERS Safety Report 19203575 (Version 1)
Quarter: 2021Q2

REPORT INFORMATION
  Report Type: Spontaneous
  Country: CA (occurrence: CA)
  Receive Date: 20210430
  Receipt Date: 20210430
  Transmission Date: 20210717
  Serious: Yes (Life-Threatening, Hospitalization)
  Sender: FDA-Public Use
  Company Number: CA-PFIZER INC-2021456780

PATIENT
  Age: 55 Year
  Sex: Male
  Weight: 98.6 kg

DRUGS (2)
  1. AMIODARONE [Concomitant]
     Active Substance: AMIODARONE
  2. VYNDAQEL [Suspect]
     Active Substance: TAFAMIDIS MEGLUMINE
     Indication: CARDIAC AMYLOIDOSIS
     Dosage: 80 MG, 1X/DAY
     Route: 048
     Dates: start: 20190201

REACTIONS (7)
  - Oedema [Unknown]
  - Ventricle rupture [Unknown]
  - Cardiac arrest [Unknown]
  - Ventricular tachycardia [Recovering/Resolving]
  - Fatigue [Unknown]
  - Hypervolaemia [Unknown]
  - Dyspnoea exertional [Unknown]

NARRATIVE: CASE EVENT DATE: 2020
